FAERS Safety Report 5668204-8 (Version None)
Quarter: 2008Q1

REPORT INFORMATION
  Report Type: 
  Country: None (occurrence: None)
  Receive Date: 20080315
  Receipt Date: 20080217
  Transmission Date: 20080703
  Serious: No
  Sender: FDA-Public Use
  Company Number: US-ABBOTT-08P-163-0438786-00

PATIENT
  Sex: Female

DRUGS (7)
  1. HUMIRA [Suspect]
     Indication: CROHN'S DISEASE
     Route: 058
     Dates: start: 20080128, end: 20080128
  2. HUMIRA [Suspect]
     Route: 058
     Dates: start: 20080211, end: 20080211
  3. HUMIRA [Suspect]
     Route: 058
  4. BUDESONIDE [Suspect]
     Indication: DRUG USE FOR UNKNOWN INDICATION
  5. BIRTH CONTROL [Concomitant]
     Indication: CONTRACEPTION
     Route: 048
  6. AZATHIOPRINE [Concomitant]
     Indication: CROHN'S DISEASE
     Route: 048
  7. CITALOPRAM HYDROBROMIDE [Concomitant]
     Indication: DEPRESSION
     Route: 048

REACTIONS (1)
  - SWELLING FACE [None]
